FAERS Safety Report 4817637-8 (Version None)
Quarter: 2005Q4

REPORT INFORMATION
  Report Type: 
  Country: None (occurrence: None)
  Receive Date: 20051102
  Receipt Date: 20051027
  Transmission Date: 20060501
  Serious: Yes (Hospitalization)
  Sender: FDA-Public Use
  Company Number: PHEH2005US11936

PATIENT
  Sex: Female

DRUGS (2)
  1. ZELNORM [Suspect]
     Indication: CONSTIPATION
     Dosage: 6 MG, QD TO BID
     Route: 048
     Dates: start: 20050101
  2. LAXATIVES [Concomitant]

REACTIONS (6)
  - COLITIS ISCHAEMIC [None]
  - COLONOSCOPY ABNORMAL [None]
  - FALL [None]
  - HAEMATOCHEZIA [None]
  - PYREXIA [None]
  - SYNCOPE VASOVAGAL [None]
